FAERS Safety Report 6326024-5 (Version None)
Quarter: 2009Q3

REPORT INFORMATION
  Report Type: 
  Country: None (occurrence: None)
  Receive Date: 20090824
  Receipt Date: 20090811
  Transmission Date: 20100115
  Serious: Yes (Death, Other)
  Sender: FDA-Public Use
  Company Number: US-TYCO HEALTHCARE/MALLINCKRODT-T200801682

PATIENT
  Sex: Male

DRUGS (9)
  1. OPTIMARK [Suspect]
     Indication: NUCLEAR MAGNETIC RESONANCE IMAGING
     Dosage: UNK, SINGLE
     Dates: start: 20050614, end: 20050614
  2. OPTIMARK [Suspect]
     Indication: ANGIOGRAM
  3. OMNISCAN [Suspect]
     Indication: NUCLEAR MAGNETIC RESONANCE IMAGING
     Dosage: UNK, SINGLE
     Dates: start: 20050813, end: 20050813
  4. GADOLINIUM [Suspect]
     Indication: ANGIOGRAM
     Dosage: UNK
     Dates: start: 20030401, end: 20030401
  5. LOPRESSOR [Concomitant]
     Indication: HYPERTENSION
     Dosage: UNK
     Dates: start: 20050101
  6. OXYCODONE [Concomitant]
     Indication: ANALGESIA
     Dosage: UNK
     Dates: start: 20050101, end: 20080201
  7. FENTANYL                           /00174602/ [Concomitant]
     Indication: ANALGESIA
     Dosage: UNK
     Dates: start: 20050101, end: 20080201
  8. CARDIZEM [Concomitant]
     Indication: CARDIAC DISORDER
     Dosage: UNK
     Dates: start: 20030101, end: 20080101
  9. DIGOXIN [Concomitant]
     Indication: CARDIAC DISORDER
     Dosage: UNK
     Dates: start: 20030101, end: 20080101

REACTIONS (40)
  - ANXIETY [None]
  - ATELECTASIS [None]
  - BACTERAEMIA [None]
  - BONE DENSITY INCREASED [None]
  - CARDIAC FAILURE CONGESTIVE [None]
  - CARDIOMEGALY [None]
  - CATHETER SEPSIS [None]
  - CONSTIPATION [None]
  - CORONARY ARTERY DISEASE [None]
  - DEEP VEIN THROMBOSIS [None]
  - DEPRESSION [None]
  - DERMATITIS EXFOLIATIVE [None]
  - DYSARTHRIA [None]
  - DYSPHAGIA [None]
  - ELECTROMECHANICAL DISSOCIATION [None]
  - FACIAL PALSY [None]
  - GOUTY ARTHRITIS [None]
  - HEMIPARESIS [None]
  - HEPARIN-INDUCED THROMBOCYTOPENIA [None]
  - HYPERPARATHYROIDISM [None]
  - HYPERTROPHIC CARDIOMYOPATHY [None]
  - HYPOPHOSPHATAEMIA [None]
  - INGUINAL HERNIA [None]
  - KERATOPATHY [None]
  - MENTAL STATUS CHANGES [None]
  - NEPHROGENIC SYSTEMIC FIBROSIS [None]
  - OESOPHAGEAL DISORDER [None]
  - OFF LABEL USE [None]
  - PARESIS CRANIAL NERVE [None]
  - PLEURAL EFFUSION [None]
  - PNEUMOMEDIASTINUM [None]
  - PNEUMONIA [None]
  - PULMONARY EMBOLISM [None]
  - PULMONARY OEDEMA [None]
  - PYREXIA [None]
  - RENAL ATROPHY [None]
  - RENAL CYST [None]
  - RESPIRATORY FAILURE [None]
  - STAPHYLOCOCCAL INFECTION [None]
  - TRIGEMINAL PALSY [None]
